FAERS Safety Report 7578657-6 (Version None)
Quarter: 2011Q2

REPORT INFORMATION
  Report Type: 
  Country: None (occurrence: None)
  Receive Date: 20110628
  Receipt Date: 20110622
  Transmission Date: 20111010
  Serious: Yes (Other)
  Sender: FDA-Public Use
  Company Number: PHEH2007US05478

PATIENT
  Sex: Female
  Weight: 56 kg

DRUGS (14)
  1. ZOMETA [Suspect]
     Indication: OSTEOPENIA
     Dosage: MONTHLY
     Route: 042
     Dates: start: 20020701, end: 20070501
  2. FLUOXETINE HCL [Concomitant]
     Dosage: 40 MG DAILY
  3. FISH OIL [Concomitant]
  4. CALTRATE 600 + VITAMIN D [Concomitant]
     Dosage: 1 TABLET TWICE DAILY
  5. PROZAC [Concomitant]
     Dosage: 40 MG DAILY
  6. AMBIEN [Concomitant]
  7. MULTI-VITAMINS [Concomitant]
  8. CHANTIX [Concomitant]
  9. SPORANOX [Concomitant]
     Dosage: 2 CAPS TWICE DAILY
  10. FOSAMAX [Suspect]
     Indication: OSTEOPOROSIS
     Dosage: 10 MG
     Dates: start: 19970507
  11. CLONAZEPAM [Concomitant]
     Dosage: 0.5 MG THREE TIMES DAILY
  12. NYSTATIN [Concomitant]
     Dosage: THREE TIMES DAILY
  13. AREDIA [Suspect]
  14. EVISTA [Concomitant]
     Dosage: 60 MG DAILY
     Dates: start: 20071101

REACTIONS (25)
  - INJURY [None]
  - PARAPROTEINAEMIA [None]
  - PARAESTHESIA [None]
  - PRIMARY SEQUESTRUM [None]
  - FISTULA [None]
  - OSTEOSCLEROSIS [None]
  - DYSPLASIA [None]
  - CERVICOBRACHIAL SYNDROME [None]
  - LIBIDO DECREASED [None]
  - TOOTH LOSS [None]
  - OSTEONECROSIS OF JAW [None]
  - MONOCLONAL GAMMOPATHY [None]
  - IMPLANT SITE SWELLING [None]
  - MULTIPLE MYELOMA [None]
  - IMPAIRED HEALING [None]
  - ANXIETY [None]
  - INTERVERTEBRAL DISC PROTRUSION [None]
  - MUSCLE SPASMS [None]
  - HOT FLUSH [None]
  - PAIN [None]
  - OSTEOPENIA [None]
  - NECK PAIN [None]
  - CARPAL TUNNEL SYNDROME [None]
  - HYPOAESTHESIA [None]
  - PAIN IN EXTREMITY [None]
